FAERS Safety Report 5908315-2 (Version None)
Quarter: 2008Q3

REPORT INFORMATION
  Report Type: 
  Country: None (occurrence: None)
  Receive Date: 20080930
  Receipt Date: 20080919
  Transmission Date: 20090109
  Serious: Yes (Other)
  Sender: FDA-Public Use
  Company Number: 2008BI024840

PATIENT
  Age: 37 Year
  Sex: Female
  Weight: 45.8133 kg

DRUGS (2)
  1. TYSABRI [Suspect]
     Indication: MULTIPLE SCLEROSIS
     Dosage: 300 MG;QM;IV
     Route: 042
     Dates: start: 20080401
  2. AVONEX [Concomitant]

REACTIONS (3)
  - CONVULSION [None]
  - MIGRAINE [None]
  - NAUSEA [None]
